FAERS Safety Report 18605725 (Version 3)
Quarter: 2021Q2

REPORT INFORMATION
  Report Type: Spontaneous
  Country: NO (occurrence: NO)
  Receive Date: 20201211
  Receipt Date: 20210624
  Transmission Date: 20210717
  Serious: Yes (Hospitalization, Disabling)
  Sender: FDA-Public Use
  Company Number: NO-ABBVIE-20K-122-3681836-00

PATIENT
  Age: 62 Year
  Sex: Male

DRUGS (1)
  1. SKYRIZI [Suspect]
     Active Substance: RISANKIZUMAB-RZAA
     Indication: PSORIASIS
     Dosage: 1?2 SYRINGES; L04AC18 ? RISANKIZUMAB
     Route: 058
     Dates: start: 20180518, end: 20200824

REACTIONS (4)
  - Tongue neoplasm malignant stage unspecified [Recovered/Resolved with Sequelae]
  - Weight decreased [Unknown]
  - Tongue haemorrhage [Unknown]
  - Hypophagia [Unknown]

NARRATIVE: CASE EVENT DATE: 20200801
